FAERS Safety Report 13447694 (Version 1)
Quarter: 2017Q2

REPORT INFORMATION
  Report Type: Spontaneous
  Country: US (occurrence: US)
  Receive Date: 20170414
  Receipt Date: 20170414
  Transmission Date: 20170830
  Serious: Yes (Hospitalization)
  Sender: FDA-Public Use
  Company Number: None

PATIENT
  Age: 44 Year
  Sex: Male

DRUGS (11)
  1. OMEPRAZOLE. [Concomitant]
     Active Substance: OMEPRAZOLE
  2. BACTRIM [Concomitant]
     Active Substance: SULFAMETHOXAZOLE\TRIMETHOPRIM
  3. CARAFATE [Concomitant]
     Active Substance: SUCRALFATE
  4. GRANIX [Suspect]
     Active Substance: TBO-FILGRASTIM
     Indication: BURKITT^S LYMPHOMA
     Dosage: 480MCG/0.8ML DAILY SUBCUT
     Route: 058
  5. LEVOTHYROXIN [Concomitant]
     Active Substance: LEVOTHYROXINE
  6. ACYCLOVIR. [Concomitant]
     Active Substance: ACYCLOVIR
  7. VITAMIN D [Concomitant]
     Active Substance: CHOLECALCIFEROL
  8. SUCRALFATE. [Concomitant]
     Active Substance: SUCRALFATE
  9. PROCHLORPER [Concomitant]
  10. ALPRAZOLAM. [Concomitant]
     Active Substance: ALPRAZOLAM
  11. ONDANSETRON [Concomitant]
     Active Substance: ONDANSETRON

REACTIONS (2)
  - Renal failure [None]
  - Neoplasm malignant [None]

NARRATIVE: CASE EVENT DATE: 201702
